FAERS Safety Report 25676351 (Version 1)
Quarter: 2025Q3

REPORT INFORMATION
  Report Type: Spontaneous
  Country: US (occurrence: US)
  Receive Date: 20250813
  Receipt Date: 20250813
  Transmission Date: 20251020
  Serious: Yes (Hospitalization)
  Sender: BIOGEN
  Company Number: US-BIOGEN-2025BI01320235

PATIENT
  Sex: Female

DRUGS (1)
  1. QALSODY [Suspect]
     Active Substance: TOFERSEN
     Indication: Amyotrophic lateral sclerosis
     Route: 050
     Dates: start: 202503

REACTIONS (2)
  - Thrombosis [Unknown]
  - Lower limb fracture [Unknown]
